FAERS Safety Report 10055083 (Version 2)
Quarter: 2014Q2

REPORT INFORMATION
  Report Type: Spontaneous
  Country: US (occurrence: US)
  Receive Date: 20140402
  Receipt Date: 20140402
  Transmission Date: 20141212
  Serious: No
  Sender: FDA-Public Use
  Company Number: US-SANOFI-AVENTIS-2013SA007806

PATIENT
  Age: 58 Year
  Sex: Female
  Weight: 66.68 kg

DRUGS (1)
  1. AUBAGIO [Suspect]
     Indication: MULTIPLE SCLEROSIS
     Route: 048
     Dates: start: 20130110, end: 20130124

REACTIONS (19)
  - Breast enlargement [Unknown]
  - Genital tract inflammation [Recovering/Resolving]
  - Vaginal discharge [Not Recovered/Not Resolved]
  - Dehydration [Not Recovered/Not Resolved]
  - Chapped lips [Not Recovered/Not Resolved]
  - Dry skin [Not Recovered/Not Resolved]
  - Muscle tightness [Recovered/Resolved]
  - Decreased appetite [Not Recovered/Not Resolved]
  - Weight decreased [Unknown]
  - Dysphagia [Not Recovered/Not Resolved]
  - Tremor [Unknown]
  - Vision blurred [Unknown]
  - Contusion [Recovering/Resolving]
  - Palpitations [Unknown]
  - Burning sensation [Recovered/Resolved]
  - Paraesthesia [Recovered/Resolved]
  - Back pain [Not Recovered/Not Resolved]
  - Hypoaesthesia [Unknown]
  - Multiple sclerosis relapse [Unknown]
